FAERS Safety Report 8880197 (Version 2)
Quarter: 2012Q4

REPORT INFORMATION
  Report Type: 
  Country: IN (occurrence: IN)
  Receive Date: 20121101
  Receipt Date: 20121107
  Transmission Date: 20130627
  Serious: Yes (Hospitalization)
  Sender: FDA-Public Use
  Company Number: PHHY2012IN098534

PATIENT
  Age: 73 Year
  Sex: Female

DRUGS (1)
  1. ACLASTA [Suspect]
     Indication: OSTEOPOROSIS
     Dosage: 5 mg/100mL
     Route: 042
     Dates: start: 20120413

REACTIONS (3)
  - Fall [Unknown]
  - Femoral neck fracture [Unknown]
  - Drug ineffective [Unknown]
